FAERS Safety Report 23169538 (Version 1)
Quarter: 2023Q4

REPORT INFORMATION
  Report Type: Spontaneous
  Country: ES (occurrence: ES)
  Receive Date: 20231110
  Receipt Date: 20231110
  Transmission Date: 20240110
  Serious: Yes (Life-Threatening, Other)
  Sender: FDA-Public Use
  Company Number: ES-AEMPS-1441684

PATIENT
  Age: 76 Year
  Sex: Female

DRUGS (1)
  1. RISPERIDONE [Suspect]
     Active Substance: RISPERIDONE
     Indication: Product used for unknown indication
     Dosage: 0.75 MILLIGRAM, TWO TIMES A DAY
     Route: 048
     Dates: start: 20230613, end: 20230928

REACTIONS (4)
  - Bradycardia [Recovered/Resolved]
  - Anticholinergic syndrome [Recovered/Resolved]
  - Accidental poisoning [Recovered/Resolved]
  - Hypotension [Recovered/Resolved]

NARRATIVE: CASE EVENT DATE: 20230928
